FAERS Safety Report 7808237-6 (Version None)
Quarter: 2011Q4

REPORT INFORMATION
  Report Type: 
  Country: None (occurrence: None)
  Receive Date: 20111012
  Receipt Date: 20110926
  Transmission Date: 20120403
  Serious: Yes (Other)
  Sender: FDA-Public Use
  Company Number: CN-ROCHE-1000007

PATIENT
  Sex: Female
  Weight: 48.5 kg

DRUGS (4)
  1. PREDNISONE [Concomitant]
     Route: 048
     Dates: start: 20100101
  2. MYCOPHENOLATE MOFETIL (CELLCEPT) [Suspect]
     Indication: RENAL TRANSPLANT
     Dosage: 0.5 G IN THE MORNING, 0.25 G IN THE EVENING
     Route: 048
     Dates: start: 20041229
  3. PROGRAF [Concomitant]
     Indication: RENAL TRANSPLANT
     Route: 048
     Dates: start: 20041229
  4. PREDNISONE [Concomitant]
     Indication: RENAL TRANSPLANT
     Route: 048
     Dates: start: 20041229, end: 20100101

REACTIONS (4)
  - BLOOD PRESSURE INCREASED [None]
  - HEART RATE INCREASED [None]
  - OEDEMA PERIPHERAL [None]
  - ANURIA [None]
